FAERS Safety Report 7775788-2 (Version None)
Quarter: 2011Q3

REPORT INFORMATION
  Report Type: 
  Country: None (occurrence: None)
  Receive Date: 20110923
  Receipt Date: 20110908
  Transmission Date: 20111222
  Serious: Yes (Death, Hospitalization)
  Sender: FDA-Public Use
  Company Number: GB-WATSON-2011-15173

PATIENT
  Age: 18 Year
  Sex: Female

DRUGS (3)
  1. DIAZEPAM [Suspect]
     Indication: SUICIDE ATTEMPT
     Dosage: 60 MG, SINGLE
     Route: 048
  2. FERROUS SULFATE TAB [Suspect]
     Indication: SUICIDE ATTEMPT
     Dosage: POSSIBLY MORE THAN 6 G
     Route: 048
  3. DICLOFENAC SODIUM [Suspect]
     Indication: SUICIDE ATTEMPT
     Dosage: 600 MG, SINGLE
     Route: 048

REACTIONS (10)
  - HEPATIC NECROSIS [None]
  - DRUG INTERACTION [None]
  - INTRACRANIAL PRESSURE INCREASED [None]
  - ACUTE RESPIRATORY DISTRESS SYNDROME [None]
  - OVERDOSE [None]
  - RIGHT VENTRICULAR FAILURE [None]
  - PULMONARY HYPERTENSION [None]
  - SHOCK [None]
  - INFECTION [None]
  - ENCEPHALOPATHY [None]
